FAERS Safety Report 18075271 (Version 1)
Quarter: 2020Q3

REPORT INFORMATION
  Report Type: Spontaneous
  Country: US (occurrence: US)
  Receive Date: 20200727
  Receipt Date: 20200727
  Transmission Date: 20201103
  Serious: No
  Sender: FDA-Public Use
  Company Number: US-ABBVIE-19K-163-3179682-00

PATIENT
  Age: 85 Year
  Sex: Female
  Weight: 49.94 kg

DRUGS (2)
  1. SYNTHROID [Suspect]
     Active Substance: LEVOTHYROXINE SODIUM
     Indication: HYPOTHYROIDISM
     Route: 048
     Dates: start: 201911
  2. TRIAMTERENE. [Concomitant]
     Active Substance: TRIAMTERENE
     Indication: HYPERTENSION

REACTIONS (1)
  - Constipation [Not Recovered/Not Resolved]

NARRATIVE: CASE EVENT DATE: 201911
